FAERS Safety Report 6356590-5 (Version None)
Quarter: 2009Q3

REPORT INFORMATION
  Report Type: 
  Country: None (occurrence: None)
  Receive Date: 20090910
  Receipt Date: 20090910
  Transmission Date: 20100115
  Serious: No
  Sender: FDA-Public Use
  Company Number: None

PATIENT
  Age: 4 Month
  Sex: Female
  Weight: 83.9154 kg

DRUGS (4)
  1. ZICAM COLD REMEDY [Suspect]
     Indication: INFLUENZA
     Dosage: 2 SWABS USAGE TWICE PER WEEK NASAL
     Route: 045
     Dates: start: 20081118, end: 20081124
  2. ZICAM COLD REMEDY [Suspect]
     Indication: PROPHYLAXIS
     Dosage: 2 SWABS USAGE TWICE PER WEEK NASAL
     Route: 045
     Dates: start: 20081118, end: 20081124
  3. ZICAM COLD REMEDY [Suspect]
     Indication: INFLUENZA
     Dosage: 2 SWABS USAGE TWICE PER WEEK NASAL
     Route: 045
     Dates: start: 20090301, end: 20090415
  4. ZICAM COLD REMEDY [Suspect]
     Indication: PROPHYLAXIS
     Dosage: 2 SWABS USAGE TWICE PER WEEK NASAL
     Route: 045
     Dates: start: 20090301, end: 20090415

REACTIONS (3)
  - AGEUSIA [None]
  - ANOSMIA [None]
  - PRODUCT QUALITY ISSUE [None]
